FAERS Safety Report 25044142 (Version 2)
Quarter: 2025Q2

REPORT INFORMATION
  Report Type: Report from Study
  Country: PL (occurrence: PL)
  Receive Date: 20250306
  Receipt Date: 20250516
  Transmission Date: 20250717
  Serious: Yes (Death, Hospitalization)
  Sender: BIOGEN
  Company Number: PL-BIOGEN-2024BI01292471

PATIENT
  Age: 54 Year
  Sex: Male

DRUGS (3)
  1. TOFERSEN [Suspect]
     Active Substance: TOFERSEN
     Indication: Amyotrophic lateral sclerosis
     Route: 050
     Dates: start: 20240727
  2. TOFERSEN [Suspect]
     Active Substance: TOFERSEN
     Route: 050
     Dates: start: 202408
  3. Riluzol [Concomitant]
     Indication: Amyotrophic lateral sclerosis
     Route: 050
     Dates: start: 202402

REACTIONS (5)
  - Respiratory failure [Fatal]
  - Colitis ulcerative [Not Recovered/Not Resolved]
  - Post lumbar puncture syndrome [Recovered/Resolved]
  - Drug ineffective [Unknown]
  - Amyotrophic lateral sclerosis [Not Recovered/Not Resolved]

NARRATIVE: CASE EVENT DATE: 20241227
